FAERS Safety Report 8592900 (Version 4)
Quarter: 2014Q1

REPORT INFORMATION
  Report Type: Spontaneous
  Country: US (occurrence: US)
  Receive Date: 20120604
  Receipt Date: 20140108
  Transmission Date: 20141002
  Serious: Yes (Hospitalization, Disabling)
  Sender: FDA-Public Use
  Company Number: US-ASTRAZENECA-2012SE34818

PATIENT
  Sex: Female
  Weight: 86.2 kg

DRUGS (21)
  1. NEXIUM [Suspect]
     Indication: GASTRIC DISORDER
     Route: 048
     Dates: start: 20060620
  2. NEXIUM [Suspect]
     Indication: GASTRIC DISORDER
     Dosage: ONCE A DAY
     Route: 048
  3. NEXIUM [Suspect]
     Indication: GASTRIC DISORDER
     Route: 048
     Dates: start: 20130507
  4. PRILOSEC [Suspect]
     Indication: GASTRIC DISORDER
     Route: 048
  5. PRILOSEC [Suspect]
     Indication: GASTRIC DISORDER
     Route: 048
     Dates: start: 20060720
  6. PREVACID [Concomitant]
     Indication: GASTRIC DISORDER
  7. ZANTAC [Concomitant]
  8. TAGAMET [Concomitant]
  9. GAVISCON [Concomitant]
  10. ATIVAN [Concomitant]
     Dates: start: 20130507
  11. LASIX [Concomitant]
     Dates: start: 20130507
  12. ROBAXIN [Concomitant]
     Dates: start: 20130507
  13. SULINDAC [Concomitant]
     Dates: start: 20130507
  14. ZESTRIL [Concomitant]
     Dates: start: 20130507
  15. ZOLOFT [Concomitant]
     Dates: start: 20130507
  16. SINEMET [Concomitant]
     Dosage: 25-100 MG DAILY
     Dates: start: 20130507
  17. ZOCOR [Concomitant]
     Dates: start: 20130507
  18. ZYRTEC [Concomitant]
     Dates: start: 20130507
  19. ATENOLOL [Concomitant]
     Dates: start: 20130507
  20. LIPITOR [Concomitant]
     Dates: start: 20060503
  21. SERTRALINE [Concomitant]
     Dates: start: 20070103

REACTIONS (6)
  - Musculoskeletal disorder [Unknown]
  - Osteoarthritis [Unknown]
  - Osteoporosis [Unknown]
  - Multiple fractures [Unknown]
  - Arthritis [Unknown]
  - Depression [Unknown]
